FAERS Safety Report 8128713-9 (Version None)
Quarter: 2012Q1

REPORT INFORMATION
  Report Type: 
  Country: None (occurrence: None)
  Receive Date: 20120210
  Receipt Date: 20110202
  Transmission Date: 20120608
  Serious: No
  Sender: FDA-Public Use
  Company Number: US-BRISTOL-MYERS SQUIBB COMPANY-15510886

PATIENT
  Sex: Female

DRUGS (1)
  1. ORENCIA [Suspect]
     Dosage: SINCE AROUND 2005/2006

REACTIONS (5)
  - HAIR TEXTURE ABNORMAL [None]
  - WHEEZING [None]
  - ALOPECIA [None]
  - NODULE [None]
  - TRICHORRHEXIS [None]
